FAERS Safety Report 13214557 (Version 1)
Quarter: 2017Q1

REPORT INFORMATION
  Report Type: Spontaneous
  Country: US (occurrence: US)
  Receive Date: 20170209
  Receipt Date: 20170209
  Transmission Date: 20170428
  Serious: No
  Sender: FDA-Public Use
  Company Number: US-ALLERGAN-1671026US

PATIENT
  Age: 60 Year
  Sex: Female

DRUGS (9)
  1. BOTOX [Suspect]
     Active Substance: ONABOTULINUMTOXINA
     Dosage: INJECTED A TOTAL OF 31 TIMES, SINGLE
     Route: 030
     Dates: start: 20160913, end: 20160913
  2. BOTOX [Suspect]
     Active Substance: ONABOTULINUMTOXINA
     Dosage: INJECTED A TOTAL OF 31 TIMES, SINGLE
     Route: 030
     Dates: start: 20160913, end: 20160913
  3. VOLTAREN [Concomitant]
     Active Substance: DICLOFENAC SODIUM
     Indication: MUSCLE RELAXANT THERAPY
     Dosage: UNK
  4. TOPAMAX [Concomitant]
     Active Substance: TOPIRAMATE
     Indication: HEADACHE
     Dosage: UNK
  5. BOTOX [Suspect]
     Active Substance: ONABOTULINUMTOXINA
     Dosage: INJECTED A TOTAL OF 31 TIMES, SINGLE
     Route: 030
     Dates: start: 20160913, end: 20160913
  6. BOTOX [Suspect]
     Active Substance: ONABOTULINUMTOXINA
     Dosage: INJECTED A TOTAL OF 31 TIMES, SINGLE
     Route: 030
     Dates: start: 20160913, end: 20160913
  7. BOTOX [Suspect]
     Active Substance: ONABOTULINUMTOXINA
     Dosage: INJECTED A TOTAL OF 31 TIMES, SINGLE
     Route: 030
     Dates: start: 20160913, end: 20160913
  8. BOTOX [Suspect]
     Active Substance: ONABOTULINUMTOXINA
     Indication: MIGRAINE
     Dosage: INJECTED A TOTAL OF 31 TIMES, SINGLE
     Route: 030
     Dates: start: 20160913, end: 20160913
  9. LYRICA [Concomitant]
     Active Substance: PREGABALIN
     Indication: FIBROMYALGIA
     Dosage: UNK

REACTIONS (10)
  - Swelling [Not Recovered/Not Resolved]
  - Brow ptosis [Not Recovered/Not Resolved]
  - Neck pain [Not Recovered/Not Resolved]
  - Paraesthesia ear [Not Recovered/Not Resolved]
  - Eyelid ptosis [Not Recovered/Not Resolved]
  - Head discomfort [Not Recovered/Not Resolved]
  - Vision blurred [Not Recovered/Not Resolved]
  - Skin tightness [Not Recovered/Not Resolved]
  - Tenderness [Not Recovered/Not Resolved]
  - Paraesthesia [Not Recovered/Not Resolved]

NARRATIVE: CASE EVENT DATE: 20160914
